FAERS Safety Report 8459935-5 (Version None)
Quarter: 2012Q2

REPORT INFORMATION
  Report Type: 
  Country: None (occurrence: None)
  Receive Date: 20120622
  Receipt Date: 20120613
  Transmission Date: 20120825
  Serious: Yes (Hospitalization)
  Sender: FDA-Public Use
  Company Number: BR-ASTRAZENECA-2012SE41123

PATIENT
  Age: 70 Year
  Sex: Male
  Weight: 93 kg

DRUGS (4)
  1. ATACAND HCT [Suspect]
     Indication: HYPERTENSION
     Dosage: 16/12.5MG TWO TIMES A DAY
     Route: 048
     Dates: start: 20090101
  2. LEXAPRO [Concomitant]
     Indication: PANIC DISORDER
  3. BRILINTA [Suspect]
     Indication: CORONARY ARTERY DISEASE
     Route: 048
     Dates: start: 20120525
  4. JANUVIA [Concomitant]
     Indication: DIABETES MELLITUS

REACTIONS (3)
  - CORONARY ARTERY OCCLUSION [None]
  - INTENTIONAL DRUG MISUSE [None]
  - OFF LABEL USE [None]
